FAERS Safety Report 12131723 (Version 1)
Quarter: 2016Q1

REPORT INFORMATION
  Report Type: Spontaneous
  Country: GB (occurrence: GB)
  Receive Date: 20160301
  Receipt Date: 20160301
  Transmission Date: 20160526
  Serious: Yes (Other)
  Sender: FDA-Public Use
  Company Number: GB-IPCA LABORATORIES LIMITED-IPC201602-000281

PATIENT
  Age: 30 Year
  Sex: Male

DRUGS (2)
  1. MORPHINE [Suspect]
     Active Substance: MORPHINE
     Route: 042
  2. TRAMADOL. [Suspect]
     Active Substance: TRAMADOL

REACTIONS (1)
  - Depressed level of consciousness [Recovered/Resolved]
